FAERS Safety Report 15962265 (Version 1)
Quarter: 2019Q1

REPORT INFORMATION
  Report Type: Spontaneous
  Country: US (occurrence: US)
  Receive Date: 20190123
  Receipt Date: 20190123
  Transmission Date: 20190417
  Serious: No
  Sender: FDA-Public Use
  Company Number: None

PATIENT
  Age: 51 Year
  Sex: Male

DRUGS (3)
  1. SUTENT [Suspect]
     Active Substance: SUNITINIB MALATE
     Indication: ADRENAL GLAND CANCER
     Route: 048
     Dates: start: 20160713
  2. OXYCODONE [Concomitant]
     Active Substance: OXYCODONE
  3. PEPCID [Concomitant]
     Active Substance: FAMOTIDINE

REACTIONS (1)
  - Surgery [None]

NARRATIVE: CASE EVENT DATE: 20190117
